FAERS Safety Report 7387063-9 (Version None)
Quarter: 2011Q1

REPORT INFORMATION
  Report Type: 
  Country: None (occurrence: None)
  Receive Date: 20110331
  Receipt Date: 20110322
  Transmission Date: 20110831
  Serious: Yes (Hospitalization, Other)
  Sender: FDA-Public Use
  Company Number: US-MERCK-1007USA01976

PATIENT
  Age: 82 Year
  Sex: Female
  Weight: 55 kg

DRUGS (9)
  1. BENICAR [Concomitant]
     Route: 065
     Dates: start: 19900101
  2. NORVASC [Concomitant]
     Route: 065
     Dates: start: 19900101
  3. CARDIZEM CD [Concomitant]
     Route: 048
     Dates: start: 20000101
  4. VITAMIN E [Concomitant]
     Route: 048
     Dates: start: 20000101
  5. LISINOPRIL [Concomitant]
     Route: 048
     Dates: start: 20000210
  6. FOSAMAX [Suspect]
     Indication: OSTEOPENIA
     Route: 048
     Dates: start: 20010406, end: 20070716
  7. HYDROCHLOROTHIAZIDE [Concomitant]
     Route: 065
     Dates: start: 19900101
  8. FOSAMAX [Suspect]
     Indication: OSTEOPOROSIS
     Route: 048
     Dates: start: 20010406, end: 20070716
  9. HYDRODIURIL [Concomitant]
     Route: 048
     Dates: start: 20000101

REACTIONS (37)
  - DEAFNESS BILATERAL [None]
  - WEIGHT DECREASED [None]
  - SUBMANDIBULAR MASS [None]
  - STRESS [None]
  - OESOPHAGEAL DISORDER [None]
  - ABSCESS DRAINAGE [None]
  - NODAL OSTEOARTHRITIS [None]
  - HYPOTENSION [None]
  - OSTEOARTHRITIS [None]
  - ADVERSE DRUG REACTION [None]
  - DEVICE FAILURE [None]
  - PULMONARY MASS [None]
  - DEVICE BREAKAGE [None]
  - BONE DENSITY DECREASED [None]
  - DENTAL CARIES [None]
  - TOOTH ABSCESS [None]
  - GINGIVAL DISORDER [None]
  - INJURY [None]
  - JOINT SPRAIN [None]
  - GOITRE [None]
  - ASTHMA [None]
  - ABDOMINAL PAIN UPPER [None]
  - FALL [None]
  - TOOTH DISORDER [None]
  - OSTEONECROSIS OF JAW [None]
  - DENTAL FISTULA [None]
  - FATIGUE [None]
  - UPPER RESPIRATORY TRACT INFECTION [None]
  - HYPOACUSIS [None]
  - THYROID NEOPLASM [None]
  - IMPAIRED HEALING [None]
  - NEUROPATHY PERIPHERAL [None]
  - ESSENTIAL HYPERTENSION [None]
  - CATARACT [None]
  - DRUG HYPERSENSITIVITY [None]
  - SKIN EXFOLIATION [None]
  - MUSCULOSKELETAL PAIN [None]
